FAERS Safety Report 14385447 (Version 2)
Quarter: 2018Q2

REPORT INFORMATION
  Report Type: Spontaneous
  Country: US (occurrence: US)
  Receive Date: 20180115
  Receipt Date: 20180625
  Transmission Date: 20180711
  Serious: Yes (Other)
  Sender: FDA-Public Use
  Company Number: US-SA-2017SA059781

PATIENT
  Age: 63 Year
  Sex: Female
  Weight: 82 kg

DRUGS (9)
  1. LATANOPROST. [Concomitant]
     Active Substance: LATANOPROST
     Dosage: UNK
  2. TAXOTERE [Suspect]
     Active Substance: DOCETAXEL
     Dosage: 144.8 MG,Q3W
     Route: 042
     Dates: start: 20150331, end: 20150331
  3. ANASTROZOLE. [Concomitant]
     Active Substance: ANASTROZOLE
     Dosage: UNK
     Dates: start: 20150106
  4. BRIMONIDINE [Concomitant]
     Active Substance: BRIMONIDINE TARTRATE
     Dosage: UNK UNK,UNK
     Dates: start: 2007
  5. TAXOTERE [Suspect]
     Active Substance: DOCETAXEL
     Indication: BREAST CANCER FEMALE
     Dosage: 144.8 MG,Q3W
     Route: 042
     Dates: start: 20150106, end: 20150106
  6. CARBOPLATIN. [Concomitant]
     Active Substance: CARBOPLATIN
     Dosage: 673.2 MG,QCY
  7. DORZOLAMIDE [Concomitant]
     Active Substance: DORZOLAMIDE
     Dosage: UNK UNK,UNK
  8. LOSARTAN. [Concomitant]
     Active Substance: LOSARTAN
     Dosage: UNK
  9. CETIRIZINE [Concomitant]
     Active Substance: CETIRIZINE HYDROCHLORIDE
     Dosage: UNK UNK,UNK
     Dates: start: 2007

REACTIONS (6)
  - Alopecia [Recovering/Resolving]
  - Impaired quality of life [Unknown]
  - Psychological trauma [Unknown]
  - Emotional distress [Unknown]
  - Pain [Unknown]
  - Anxiety [Unknown]

NARRATIVE: CASE EVENT DATE: 20150930
